FAERS Safety Report 22173813 (Version 1)
Quarter: 2023Q2

REPORT INFORMATION
  Report Type: Spontaneous
  Country: US (occurrence: US)
  Receive Date: 20230404
  Receipt Date: 20230404
  Transmission Date: 20230722
  Serious: No
  Sender: FDA-Public Use
  Company Number: US-BRISTOL-MYERS SQUIBB COMPANY-2023-048240

PATIENT
  Age: 75 Year
  Sex: Male
  Weight: 99.33 kg

DRUGS (1)
  1. ELIQUIS [Suspect]
     Active Substance: APIXABAN
     Indication: Blood blister
     Route: 048
     Dates: start: 202211

REACTIONS (2)
  - Product dose omission issue [Unknown]
  - Off label use [Unknown]
